FAERS Safety Report 21663826 (Version 1)
Quarter: 2022Q4

REPORT INFORMATION
  Report Type: Report from Study
  Country: US (occurrence: US)
  Receive Date: 20221130
  Receipt Date: 20221130
  Transmission Date: 20230113
  Serious: No
  Sender: FDA-Public Use
  Company Number: US-ABBVIE-4169227

PATIENT
  Sex: Male

DRUGS (4)
  1. HUMIRA [Suspect]
     Active Substance: ADALIMUMAB
     Indication: Rheumatoid arthritis
     Route: 058
  2. Covid vaccine [Concomitant]
     Indication: COVID-19 immunisation
     Dosage: ONE IN ONE 1ST DOSE
     Route: 030
     Dates: start: 20210201, end: 20210201
  3. Covid vaccine [Concomitant]
     Indication: COVID-19 immunisation
     Dosage: 1 IN ONE 2 ND DOSE
     Route: 030
     Dates: start: 20210301, end: 20210301
  4. Covid vaccine [Concomitant]
     Indication: COVID-19 immunisation
     Route: 030
     Dates: start: 20211201, end: 20211201

REACTIONS (1)
  - Therapeutic product effect decreased [Unknown]
